FAERS Safety Report 5671294-X (Version None)
Quarter: 2008Q1

REPORT INFORMATION
  Report Type: 
  Country: None (occurrence: None)
  Receive Date: 20080318
  Receipt Date: 20080314
  Transmission Date: 20080703
  Serious: Yes (Hospitalization)
  Sender: FDA-Public Use
  Company Number: US-BRISTOL-MYERS SQUIBB COMPANY-14115570

PATIENT
  Age: 71 Year
  Sex: Male
  Weight: 72 kg

DRUGS (16)
  1. ERBITUX [Suspect]
     Indication: NON-SMALL CELL LUNG CANCER
  2. TAXOL [Suspect]
     Indication: NON-SMALL CELL LUNG CANCER
     Route: 042
     Dates: start: 20080227
  3. CARBOPLATIN [Suspect]
     Indication: NON-SMALL CELL LUNG CANCER
     Route: 042
     Dates: start: 20080227
  4. RADIATION THERAPY [Suspect]
     Indication: NON-SMALL CELL LUNG CANCER
  5. THEOPHYLLINE [Concomitant]
  6. HYDROXYZINE [Concomitant]
  7. SPIRIVA [Concomitant]
  8. ADVAIR DISKUS 100/50 [Concomitant]
  9. SAW PALMETTO [Concomitant]
  10. HYCODAN [Concomitant]
  11. COMBIVENT [Concomitant]
  12. BENZONATATE [Concomitant]
  13. PRILOSEC [Concomitant]
  14. SIMVASTATIN [Concomitant]
  15. TOPROL [Concomitant]
  16. DIFLUCAN [Concomitant]

REACTIONS (4)
  - CHILLS [None]
  - DYSPNOEA [None]
  - NEUTROPENIA [None]
  - PYREXIA [None]
